FAERS Safety Report 4438728-X (Version None)
Quarter: 2004Q3

REPORT INFORMATION
  Report Type: 
  Country: None (occurrence: None)
  Receive Date: 20040830
  Receipt Date: 20040817
  Transmission Date: 20050211
  Serious: Yes (Death, Hospitalization)
  Sender: FDA-Public Use
  Company Number: 163-20785-04070683

PATIENT
  Age: 78 Year
  Sex: Male

DRUGS (2)
  1. THALOMID [Suspect]
     Indication: MULTIPLE MYELOMA
     Dosage: 200 MG, DAILY, ORAL
     Route: 048
     Dates: start: 20031009, end: 20040526
  2. DECADRON [Suspect]

REACTIONS (9)
  - ABDOMINAL ABSCESS [None]
  - APPENDICITIS [None]
  - ATRIAL FIBRILLATION [None]
  - CHOLECYSTITIS [None]
  - DIVERTICULAR PERFORATION [None]
  - LARGE INTESTINE PERFORATION [None]
  - MALIGNANT NEOPLASM PROGRESSION [None]
  - MULTIPLE MYELOMA [None]
  - PULMONARY OEDEMA [None]
